FAERS Safety Report 16702398 (Version 1)
Quarter: 2019Q3

REPORT INFORMATION
  Report Type: Spontaneous
  Country: US (occurrence: US)
  Receive Date: 20190813
  Receipt Date: 20190813
  Transmission Date: 20191004
  Serious: Yes (Hospitalization, Other)
  Sender: FDA-Public Use
  Company Number: None

PATIENT
  Age: 54 Year
  Sex: Female
  Weight: 61.2 kg

DRUGS (3)
  1. CAPECITABINE. [Suspect]
     Active Substance: CAPECITABINE
     Indication: BREAST CANCER FEMALE
     Dosage: ?          OTHER FREQUENCY:1000MG AM1500MG PM;?
     Route: 048
     Dates: start: 20190722, end: 20190813
  2. NERLYNX [Concomitant]
     Active Substance: NERATINIB
  3. VITAMIN B12 [Concomitant]
     Active Substance: CYANOCOBALAMIN

REACTIONS (5)
  - Malignant neoplasm progression [None]
  - Coma [None]
  - Brain oedema [None]
  - Fall [None]
  - Skin laceration [None]

NARRATIVE: CASE EVENT DATE: 20190813
